FAERS Safety Report 24262433 (Version 1)
Quarter: 2024Q3

REPORT INFORMATION
  Report Type: Spontaneous
  Country: US (occurrence: US)
  Receive Date: 20240829
  Receipt Date: 20240829
  Transmission Date: 20241017
  Serious: Yes (Other)
  Sender: BOSTON SCIENTIFIC
  Company Number: US-BSC-2024000061

PATIENT
  Age: 87 Year
  Sex: Female

DRUGS (2)
  1. VARITHENA [Suspect]
     Active Substance: POLIDOCANOL
     Indication: Peripheral venous disease
     Dosage: TOTAL OF 15 CC WAS USED TO TREAT RIGHT GSV AND 8 CC WAS PURGED
     Dates: start: 20240429
  2. VARITHENA [Suspect]
     Active Substance: POLIDOCANOL
     Indication: Peripheral venous disease
     Dosage: TOTAL OF 15 CC WAS USED TO TREAT RIGHT GSV AND 8 CC WAS PURGED
     Dates: start: 20240429

REACTIONS (2)
  - Peripheral vein thrombus extension [Not Recovered/Not Resolved]
  - Deep vein thrombosis [Not Recovered/Not Resolved]

NARRATIVE: CASE EVENT DATE: 20240508
